FAERS Safety Report 5735823-X (Version None)
Quarter: 2008Q2

REPORT INFORMATION
  Report Type: 
  Country: None (occurrence: None)
  Receive Date: 20080508
  Receipt Date: 20080508
  Transmission Date: 20081010
  Serious: No
  Sender: FDA-Public Use
  Company Number: None

PATIENT
  Sex: Female
  Weight: 47.6277 kg

DRUGS (2)
  1. CREST W/ FLUORIDE [Suspect]
     Dosage: 1 INCH STRIP 2-3 TIMES DAILY PO
     Route: 048
     Dates: start: 20061201, end: 20080507
  2. CREST PRO HEALTH MOUTHWASH [Suspect]
     Dosage: 30 MILLILITERS 2-3 TIMES DAILY PO
     Route: 048
     Dates: start: 20061201, end: 20080507

REACTIONS (1)
  - TOOTH DISCOLOURATION [None]
